FAERS Safety Report 6339623-1 (Version None)
Quarter: 2009Q3

REPORT INFORMATION
  Report Type: 
  Country: None (occurrence: None)
  Receive Date: 20090903
  Receipt Date: 20090831
  Transmission Date: 20100115
  Serious: Yes (Hospitalization, Other)
  Sender: FDA-Public Use
  Company Number: US-MERCK-0903USA01373

PATIENT
  Age: 68 Year
  Sex: Female

DRUGS (2)
  1. FOSAMAX [Suspect]
     Indication: OSTEOPOROSIS
     Route: 048
     Dates: start: 19960601
  2. FOSAMAX [Suspect]
     Route: 048
     Dates: end: 20080601

REACTIONS (8)
  - BREAST CANCER [None]
  - BREAST CELLULITIS [None]
  - BREAST DISORDER [None]
  - BREAST HYPERPLASIA [None]
  - FEMUR FRACTURE [None]
  - HYPERCHOLESTEROLAEMIA [None]
  - INTRADUCTAL PAPILLOMA OF BREAST [None]
  - JOINT EFFUSION [None]
